FAERS Safety Report 15382416 (Version 1)
Quarter: 2018Q3

REPORT INFORMATION
  Report Type: Spontaneous
  Country: US (occurrence: US)
  Receive Date: 20180913
  Receipt Date: 20180913
  Transmission Date: 20181010
  Serious: Yes (Other)
  Sender: FDA-Public Use
  Company Number: US-ASTELLAS-2018US011793

PATIENT
  Sex: Male

DRUGS (1)
  1. XTANDI [Suspect]
     Active Substance: ENZALUTAMIDE
     Indication: PROSTATE CANCER
     Route: 065

REACTIONS (8)
  - Weight decreased [Unknown]
  - Malignant neoplasm progression [Unknown]
  - Haematocrit increased [Unknown]
  - Nausea [Unknown]
  - Haemoglobin increased [Unknown]
  - Abdominal tenderness [Unknown]
  - Fatigue [Unknown]
  - Vomiting [Unknown]
